FAERS Safety Report 19053263 (Version 3)
Quarter: 2021Q2

REPORT INFORMATION
  Report Type: Spontaneous
  Country: CZ (occurrence: CZ)
  Receive Date: 20210324
  Receipt Date: 20210506
  Transmission Date: 20210717
  Serious: Yes (Death, Life-Threatening, Hospitalization, Other)
  Sender: FDA-Public Use
  Company Number: CZ-CELGENEUS-CZE-2015011108

PATIENT
  Age: 50 Year
  Sex: Male
  Weight: 84 kg

DRUGS (49)
  1. DEXAMETHASONE. [Suspect]
     Active Substance: DEXAMETHASONE
     Indication: PLASMA CELL MYELOMA
     Route: 048
     Dates: start: 20130618
  2. MLN9708 [Suspect]
     Active Substance: IXAZOMIB
     Dosage: 4 MILLIGRAM
     Route: 048
     Dates: end: 20141216
  3. OMEPRAZOLUM [Concomitant]
     Dosage: 40 MILLIGRAM
     Route: 048
     Dates: start: 20150108
  4. ACICLOVIRUM [Concomitant]
     Dosage: 200 MILLIGRAM
     Route: 048
     Dates: start: 20150108
  5. COTRIMOXAZOL [Concomitant]
     Active Substance: SULFAMETHOXAZOLE\TRIMETHOPRIM
     Indication: INFECTION PROPHYLAXIS
     Dosage: 80/400 MG
     Route: 048
     Dates: start: 20130618
  6. LACTULOSUM [Concomitant]
     Indication: CONSTIPATION PROPHYLAXIS
     Route: 065
     Dates: start: 20130708, end: 20130916
  7. FENTANYLUM [Concomitant]
     Indication: BACK PAIN
     Route: 065
     Dates: start: 20140212, end: 20140303
  8. FENTANYLUM [Concomitant]
     Route: 065
     Dates: end: 20140915
  9. DEXAMETHASONE. [Suspect]
     Active Substance: DEXAMETHASONE
     Route: 048
     Dates: end: 20141216
  10. DINATRII CLODRONAS [Concomitant]
     Indication: PROPHYLAXIS
     Dosage: 1600 MILLIGRAM
     Route: 048
     Dates: start: 20101210
  11. NIMESULIDUM [Concomitant]
     Indication: BACK PAIN
     Route: 048
     Dates: start: 2010
  12. ZOLPIDEMI TARTRAS [Concomitant]
     Indication: INSOMNIA
     Route: 048
     Dates: start: 20130618
  13. GRANISETRONUM [Concomitant]
     Indication: PROPHYLAXIS
     Route: 048
     Dates: start: 20130902
  14. NADROPARINUM CALCIUM [Concomitant]
     Dosage: .3 MILLILITER
     Route: 058
     Dates: start: 20150107, end: 20150107
  15. CLODRONATE DISODIUM [Concomitant]
     Active Substance: CLODRONATE DISODIUM
     Indication: PRODUCT USED FOR UNKNOWN INDICATION
     Route: 065
     Dates: start: 20101210
  16. REVLIMID [Suspect]
     Active Substance: LENALIDOMIDE
     Dosage: 25 MILLIGRAM
     Route: 048
     Dates: end: 20141216
  17. NADROPARINUM CALCIUM [Concomitant]
     Indication: THROMBOCYTOPENIA
     Dosage: .4 MILLILITER
     Route: 058
     Dates: start: 20141124, end: 20150108
  18. NADROPARIN [Concomitant]
     Active Substance: NADROPARIN
     Indication: PROPHYLAXIS
     Route: 065
     Dates: start: 20130618, end: 20131209
  19. OXYCODONE [Concomitant]
     Active Substance: OXYCODONE
     Indication: BACK PAIN
     Route: 065
     Dates: start: 20110718, end: 20130901
  20. METOCLOPRAMIDE. [Concomitant]
     Active Substance: METOCLOPRAMIDE
     Indication: PROPHYLAXIS OF NAUSEA AND VOMITING
     Route: 065
     Dates: start: 20130701, end: 20131015
  21. BUPRENORPHIUM [Concomitant]
     Indication: PROPHYLAXIS
     Route: 065
     Dates: start: 20131016, end: 20140211
  22. CLOROXINUM [Concomitant]
     Route: 065
     Dates: start: 20140708, end: 20140711
  23. NADROPARINUM CALCIUM [Concomitant]
     Dosage: .6 MILLILITER
     Route: 058
     Dates: start: 20150107, end: 20150107
  24. NADROPARIN [Concomitant]
     Active Substance: NADROPARIN
     Route: 065
     Dates: start: 20131210, end: 20141023
  25. KALLI CHLORDIUM [Concomitant]
     Indication: PROPHYLAXIS
     Route: 065
     Dates: start: 20130805, end: 20130901
  26. CLOROXINUM [Concomitant]
     Indication: DIARRHOEA
     Route: 065
     Dates: start: 20140121, end: 20140123
  27. LACTULOSE. [Concomitant]
     Active Substance: LACTULOSE
     Indication: PRODUCT USED FOR UNKNOWN INDICATION
     Route: 065
     Dates: start: 20130708, end: 20130916
  28. POTASSIUM CHLORIDE. [Concomitant]
     Active Substance: POTASSIUM CHLORIDE
     Indication: PRODUCT USED FOR UNKNOWN INDICATION
     Route: 065
     Dates: start: 20130805, end: 20130901
  29. OMEPRAZOLUM [Concomitant]
     Dosage: 40 MILLIGRAM
     Route: 048
     Dates: start: 20150107, end: 20150107
  30. NADROPARINUM CALCIUM [Concomitant]
     Dosage: .8 MILLILITER
     Route: 058
     Dates: start: 20150108, end: 20150108
  31. CALTRATE [Concomitant]
     Active Substance: CALCIUM CARBONATE
     Indication: PROPHYLAXIS
     Route: 065
     Dates: start: 20101115, end: 20141118
  32. PAMYCON [Concomitant]
     Indication: URINARY TRACT INFECTION
     Route: 065
     Dates: start: 20131230, end: 20140106
  33. REVLIMID [Suspect]
     Active Substance: LENALIDOMIDE
     Indication: PLASMA CELL MYELOMA
     Dosage: 25 MILLIGRAM
     Route: 048
     Dates: start: 20130618
  34. MLN9708 [Suspect]
     Active Substance: IXAZOMIB
     Indication: PLASMA CELL MYELOMA
     Dosage: 4 MILLIGRAM
     Route: 048
     Dates: start: 20130618
  35. OMEPRAZOLUM [Concomitant]
     Indication: PROPHYLAXIS
     Dosage: 20 MILLIGRAM
     Route: 048
     Dates: start: 20130903
  36. ACICLOVIRUM [Concomitant]
     Indication: PROPHYLAXIS
     Dosage: 400 MILLIGRAM
     Route: 048
     Dates: start: 20130618
  37. PARACETAMOLUM [Concomitant]
     Active Substance: ACETAMINOPHEN
     Indication: BACK PAIN
     Route: 048
     Dates: start: 20131016
  38. FILGRASTIMUM [Concomitant]
     Indication: PROPHYLAXIS
     Dosage: 48 IU (INTERNATIONAL UNIT)
     Route: 058
     Dates: start: 20140916
  39. FILGRASTIMUM [Concomitant]
     Dosage: 48 IU (INTERNATIONAL UNIT)
     Route: 058
     Dates: start: 20150106
  40. OXYCODONE [Concomitant]
     Active Substance: OXYCODONE
     Route: 065
     Dates: start: 20130902, end: 20131015
  41. AUGMENTIN [Concomitant]
     Active Substance: AMOXICILLIN\CLAVULANATE POTASSIUM
     Indication: INFECTION
     Route: 065
     Dates: start: 20131112, end: 20131122
  42. CEFUROXIMUM [Concomitant]
     Indication: URINARY TRACT INFECTION
     Route: 065
     Dates: start: 20131210, end: 20131214
  43. CEFUROXIMUM [Concomitant]
     Route: 065
     Dates: start: 20140325, end: 20140403
  44. DIOSMECTITE [Concomitant]
     Active Substance: MONTMORILLONITE
     Indication: GASTROENTERITIS
     Route: 065
     Dates: start: 20140708, end: 20140711
  45. BROMAZEPAMUM [Concomitant]
     Indication: PROPHYLAXIS
     Route: 048
     Dates: start: 20141024
  46. CLODRONATE DISODIUM [Concomitant]
     Active Substance: CLODRONATE DISODIUM
     Dosage: 200 MILLIGRAM
     Route: 048
     Dates: start: 20150108
  47. GLYCERIN. [Concomitant]
     Active Substance: GLYCERIN
     Indication: CONSTIPATION PROPHYLAXIS
     Route: 065
     Dates: start: 20130708, end: 20130916
  48. CEFUROXIMUM [Concomitant]
     Route: 065
     Dates: start: 20140930, end: 20141005
  49. FENTANYLUM [Concomitant]
     Route: 065
     Dates: start: 20140304

REACTIONS (2)
  - Plasma cell myeloma [Fatal]
  - Pulmonary embolism [Fatal]

NARRATIVE: CASE EVENT DATE: 20150106
